FAERS Safety Report 5382398-3 (Version None)
Quarter: 2007Q3

REPORT INFORMATION
  Report Type: 
  Country: None (occurrence: None)
  Receive Date: 20070709
  Receipt Date: 20070629
  Transmission Date: 20080115
  Serious: Yes (Hospitalization, Other)
  Sender: FDA-Public Use
  Company Number: US-SHR-US-2007-024447

PATIENT
  Age: 73 Year
  Sex: Male

DRUGS (3)
  1. LEUKINE [Suspect]
     Dosage: 500 A?G, UNK
     Route: 058
     Dates: start: 20070628
  2. ETOPOSIDE [Concomitant]
     Dates: start: 20070601
  3. OTHER CHEMOTHERAPEUTICS [Concomitant]
     Dates: start: 20070601

REACTIONS (11)
  - BLOOD PRESSURE DECREASED [None]
  - DIZZINESS [None]
  - EYE HAEMORRHAGE [None]
  - EYE ROLLING [None]
  - FLUSHING [None]
  - HYPERHIDROSIS [None]
  - LOSS OF CONSCIOUSNESS [None]
  - NAUSEA [None]
  - NEUROLOGICAL SYMPTOM [None]
  - PULSE ABSENT [None]
  - RETCHING [None]
